FAERS Safety Report 5395295-4 (Version None)
Quarter: 2007Q3

REPORT INFORMATION
  Report Type: 
  Country: None (occurrence: None)
  Receive Date: 20070724
  Receipt Date: 20070713
  Transmission Date: 20080115
  Serious: Yes (Other)
  Sender: FDA-Public Use
  Company Number: DK-ASTRAZENECA-2007SE03984

PATIENT
  Age: 15771 Day
  Sex: Female

DRUGS (8)
  1. XYLOCAINE [Suspect]
     Indication: PAIN IN EXTREMITY
     Dates: start: 20050222
  2. XYLOCAINE [Suspect]
     Dates: start: 20050308
  3. XYLOCAINE [Suspect]
     Dates: start: 20050322
  4. XYLOCAINE [Suspect]
     Dates: start: 20050412
  5. KENALOG [Suspect]
     Indication: PAIN IN EXTREMITY
     Dates: start: 20050222
  6. KENALOG [Suspect]
     Dates: start: 20050308
  7. KENALOG [Suspect]
     Dates: start: 20050322
  8. KENALOG [Suspect]
     Dates: start: 20050412

REACTIONS (1)
  - HIRSUTISM [None]
